FAERS Safety Report 4647547-0 (Version None)
Quarter: 2005Q2

REPORT INFORMATION
  Report Type: 
  Country: None (occurrence: None)
  Receive Date: 20050428
  Receipt Date: 20050421
  Transmission Date: 20051028
  Serious: Yes (Death, Hospitalization)
  Sender: FDA-Public Use
  Company Number: JP-ROCHE-402654

PATIENT
  Age: 81 Year
  Sex: Male

DRUGS (1)
  1. ROCEPHIN [Suspect]
     Indication: PNEUMONIA
     Route: 041
     Dates: start: 20050419, end: 20050420

REACTIONS (3)
  - ASTHMA [None]
  - DRUG ERUPTION [None]
  - MULTI-ORGAN FAILURE [None]
